FAERS Safety Report 21094027 (Version 1)
Quarter: 2022Q3

REPORT INFORMATION
  Report Type: Other
  Country: CA (occurrence: CA)
  Receive Date: 20220718
  Receipt Date: 20220718
  Transmission Date: 20221027
  Serious: Yes (Other)
  Sender: FDA-Public Use
  Company Number: CA-TARO PHARMACEUTICALS USA INC.-2022TAR00901

PATIENT
  Age: 79 Year
  Sex: Female

DRUGS (1)
  1. WARFARIN [Suspect]
     Active Substance: WARFARIN
     Indication: Embolism venous
     Dosage: 3 MG, QD
     Route: 048

REACTIONS (2)
  - Thrombocytopenia [Unknown]
  - Haemorrhage intracranial [Unknown]
